FAERS Safety Report 24049110 (Version 2)
Quarter: 2024Q3

REPORT INFORMATION
  Report Type: Report from Study
  Country: IT (occurrence: IT)
  Receive Date: 20240704
  Receipt Date: 20240801
  Transmission Date: 20241017
  Serious: Yes (Other)
  Sender: TEVA
  Company Number: None

PATIENT
  Age: 74 Year
  Sex: Female
  Weight: 57 kg

DRUGS (5)
  1. PACLITAXEL [Suspect]
     Active Substance: PACLITAXEL
     Indication: Ovarian cancer
     Dosage: 278.25 MG EVERY 21 DAYS, PACLITAXEL TEVA
     Route: 042
     Dates: start: 20240424, end: 20240515
  2. ATORVASTATIN [Concomitant]
     Active Substance: ATORVASTATIN
     Indication: Hypercholesterolaemia
     Route: 048
  3. VEGZELMA [Suspect]
     Active Substance: BEVACIZUMAB-ADCD
     Indication: Ovarian cancer
     Dosage: 855 MG EVERY 21 DAYS
     Route: 042
     Dates: start: 20240424, end: 20240515
  4. CARBOPLATIN [Suspect]
     Active Substance: CARBOPLATIN
     Indication: Ovarian cancer
     Dosage: 323.27 MG EVERY 21 DAYS, CARBOPLATINO TEVA
     Route: 042
     Dates: start: 20240424, end: 20240515
  5. DULOXETINE [Concomitant]
     Active Substance: DULOXETINE
     Indication: Depression
     Route: 048

REACTIONS (1)
  - Neutropenia [Recovering/Resolving]

NARRATIVE: CASE EVENT DATE: 20240604
